FAERS Safety Report 7342541-3 (Version None)
Quarter: 2011Q1

REPORT INFORMATION
  Report Type: 
  Country: None (occurrence: None)
  Receive Date: 20110310
  Receipt Date: 20110222
  Transmission Date: 20110831
  Serious: Yes (Other)
  Sender: FDA-Public Use
  Company Number: US-BAYER-201035827NA

PATIENT
  Sex: Female

DRUGS (1)
  1. YASMIN [Suspect]
     Dates: start: 20010701, end: 20040101

REACTIONS (2)
  - CHOLELITHIASIS [None]
  - CHOLECYSTITIS CHRONIC [None]
